FAERS Safety Report 9942196 (Version 1)
Quarter: 2014Q1

REPORT INFORMATION
  Report Type: Spontaneous
  Country: US (occurrence: US)
  Receive Date: 20140303
  Receipt Date: 20140303
  Transmission Date: 20141002
  Serious: No
  Sender: FDA-Public Use
  Company Number: US-ABBVIE-13P-163-1043923-00

PATIENT
  Age: 57 Year
  Sex: Female
  Weight: 77.18 kg

DRUGS (9)
  1. HUMIRA [Suspect]
     Indication: RHEUMATOID ARTHRITIS
     Dates: start: 20130108
  2. CITALOPRAM [Concomitant]
     Indication: PAIN
  3. CITALOPRAM [Concomitant]
     Indication: MIGRAINE
  4. IMITREX [Concomitant]
     Indication: MIGRAINE
  5. LYRICA [Concomitant]
     Indication: NEURALGIA
  6. SYNTHROID [Concomitant]
     Indication: PRODUCT USED FOR UNKNOWN INDICATION
  7. SOMA [Concomitant]
     Indication: PAIN
  8. SOMA [Concomitant]
     Indication: MUSCLE RELAXANT THERAPY
  9. MORPHINE SULFATE [Concomitant]
     Indication: PAIN

REACTIONS (6)
  - Flushing [Recovered/Resolved]
  - Pyrexia [Recovered/Resolved]
  - Injection site pain [Recovered/Resolved]
  - Injection site pain [Recovered/Resolved]
  - Injection site haemorrhage [Recovered/Resolved]
  - Device malfunction [Unknown]
